FAERS Safety Report 7589537-4 (Version None)
Quarter: 2011Q3

REPORT INFORMATION
  Report Type: 
  Country: None (occurrence: None)
  Receive Date: 20110705
  Receipt Date: 20110630
  Transmission Date: 20111222
  Serious: Yes (Hospitalization)
  Sender: FDA-Public Use
  Company Number: ES-PFIZER INC-2011147117

PATIENT
  Age: 87 Year
  Sex: Female

DRUGS (13)
  1. NEURONTIN [Suspect]
     Indication: PAIN
     Dosage: 300 MG, DAILY
     Route: 048
     Dates: start: 20061001, end: 20101007
  2. DIGOXIN [Concomitant]
     Dosage: UNK
  3. FUROSEMIDE [Concomitant]
     Dosage: UNK
  4. BUPRENORPHINE [Interacting]
     Indication: PAIN
     Dosage: 15 UG, DAILY
     Route: 062
     Dates: end: 20101011
  5. ENALAPRIL [Concomitant]
     Indication: HYPERTENSION
     Dosage: 20 MG, DAILY
     Route: 048
     Dates: start: 20061001, end: 20101009
  6. XALATAN [Concomitant]
     Dosage: UNK
  7. ALPRAZOLAM [Interacting]
     Dosage: 0.25 MG, DAILY
     Route: 048
     Dates: start: 20070801, end: 20101004
  8. METFORMIN [Concomitant]
     Dosage: UNK
  9. RISPERDAL [Interacting]
     Indication: DEMENTIA
     Dosage: 2 MG DAILY
     Route: 048
  10. TRAMADOL HYDROCHLORIDE AND ACETAMINOPHEN [Interacting]
     Indication: PAIN
     Dosage: UNK
     Route: 048
     Dates: start: 20100920, end: 20101007
  11. PARACETAMOL [Concomitant]
     Dosage: UNK
  12. SINTROM [Concomitant]
     Dosage: UNK
  13. DOMPERIDONE [Concomitant]
     Dosage: UNK

REACTIONS (2)
  - DRUG INTERACTION [None]
  - CONFUSIONAL STATE [None]
